FAERS Safety Report 11095494 (Version 2)
Quarter: 2015Q2

REPORT INFORMATION
  Report Type: Spontaneous
  Country: UA (occurrence: UA)
  Receive Date: 20150506
  Receipt Date: 20150519
  Transmission Date: 20150821
  Serious: Yes (Death, Hospitalization, Other)
  Sender: FDA-Public Use
  Company Number: UA-009507513-1504UKR023682

PATIENT
  Sex: Male

DRUGS (3)
  1. COPEGUS [Suspect]
     Active Substance: RIBAVIRIN
     Dosage: UNK
     Route: 048
     Dates: start: 20150220, end: 20150417
  2. VICTRELIS [Suspect]
     Active Substance: BOCEPREVIR
     Dosage: UNK
     Route: 048
     Dates: start: 20150320, end: 20150417
  3. PEGASYS [Suspect]
     Active Substance: PEGINTERFERON ALFA-2A
     Dosage: UNK
     Dates: start: 20150220, end: 20150417

REACTIONS (13)
  - Urinary retention [Recovering/Resolving]
  - Pancreatitis [Recovered/Resolved]
  - Pneumonia [Unknown]
  - Sepsis [Fatal]
  - Hodgkin^s disease [Fatal]
  - Condition aggravated [Not Recovered/Not Resolved]
  - Multi-organ failure [Fatal]
  - Renal failure [Unknown]
  - Oedema genital [Recovering/Resolving]
  - Diarrhoea [Recovered/Resolved]
  - Haematochezia [Unknown]
  - Tachycardia [Unknown]
  - Body temperature increased [Recovering/Resolving]

NARRATIVE: CASE EVENT DATE: 201504
